FAERS Safety Report 11071076 (Version 1)
Quarter: 2015Q2

REPORT INFORMATION
  Report Type: Spontaneous
  Country: None (occurrence: None)
  Receive Date: 20150427
  Receipt Date: 20150427
  Transmission Date: 20150821
  Serious: Yes (Other)
  Sender: FDA-Public Use
  Company Number: None

PATIENT
  Age: 33 Year
  Sex: Female
  Weight: 49.9 kg

DRUGS (1)
  1. ADDERALL [Suspect]
     Active Substance: AMPHETAMINE ASPARTATE\AMPHETAMINE SULFATE\DEXTROAMPHETAMINE SACCHARATE\DEXTROAMPHETAMINE SULFATE
     Indication: DISTURBANCE IN ATTENTION
     Dosage: 2 TIMES DAY, TWICE DAILY, TAKEN BY MOUTH
     Route: 048
     Dates: start: 20150419, end: 20150424

REACTIONS (7)
  - Confusional state [None]
  - Product substitution issue [None]
  - Migraine [None]
  - Muscle tightness [None]
  - Fatigue [None]
  - Heart rate irregular [None]
  - Dizziness [None]

NARRATIVE: CASE EVENT DATE: 20150424
